FAERS Safety Report 16713920 (Version 1)
Quarter: 2019Q3

REPORT INFORMATION
  Report Type: Spontaneous
  Country: US (occurrence: US)
  Receive Date: 20190819
  Receipt Date: 20190819
  Transmission Date: 20191004
  Serious: No
  Sender: FDA-Public Use
  Company Number: US-SHIRE-US201926527

PATIENT
  Age: 5 Year
  Sex: Male

DRUGS (1)
  1. ADDERALL XR [Suspect]
     Active Substance: AMPHETAMINE ASPARTATE\AMPHETAMINE SULFATE\DEXTROAMPHETAMINE SACCHARATE\DEXTROAMPHETAMINE SULFATE
     Indication: ATTENTION DEFICIT/HYPERACTIVITY DISORDER
     Dosage: UNK, 1X/DAY:QD
     Route: 048
     Dates: start: 201609, end: 201609

REACTIONS (5)
  - Somnolence [Recovered/Resolved]
  - Drug ineffective [Recovered/Resolved]
  - Sleep disorder [Recovered/Resolved]
  - Mania [Recovered/Resolved]
  - Energy increased [Recovered/Resolved]

NARRATIVE: CASE EVENT DATE: 201609
